FAERS Safety Report 18159420 (Version 1)
Quarter: 2020Q3

REPORT INFORMATION
  Report Type: Report from Study
  Country: US (occurrence: US)
  Receive Date: 20200818
  Receipt Date: 20200818
  Transmission Date: 20201103
  Serious: Yes (Death, Hospitalization, Other)
  Sender: FDA-Public Use
  Company Number: US-BRISTOL-MYERS SQUIBB COMPANY-BMS-2020-062030

PATIENT
  Age: 62 Year
  Sex: Male
  Weight: 109.5 kg

DRUGS (2)
  1. NIVOLUMAB [Suspect]
     Active Substance: NIVOLUMAB
     Indication: CHOLANGIOCARCINOMA
     Dosage: 240 MG, 30 MINUTES, DAYS 1 AND 15
     Route: 042
     Dates: start: 20200720, end: 20200803
  2. RUCAPARIB [Suspect]
     Active Substance: RUCAPARIB
     Indication: CHOLANGIOCARCINOMA
     Dosage: 600 MG TWIE DAILY, DAYS 1?28, EVERY 28 DAYS
     Route: 042
     Dates: start: 20200720, end: 20200803

REACTIONS (2)
  - Cardiac failure [Fatal]
  - Embolism [Recovered/Resolved]

NARRATIVE: CASE EVENT DATE: 20200728
